FAERS Safety Report 8397099-7 (Version None)
Quarter: 2012Q2

REPORT INFORMATION
  Report Type: 
  Country: None (occurrence: None)
  Receive Date: 20120530
  Receipt Date: 20120522
  Transmission Date: 20120825
  Serious: Yes (Other)
  Sender: FDA-Public Use
  Company Number: CHNY2012DE000513

PATIENT
  Age: 44 Year
  Sex: Male

DRUGS (2)
  1. OTRIVIN [Suspect]
     Dosage: 0.05% 2-3 X 10 ML DAILY FOR 1-2 MONTHS
     Route: 045
  2. OTRIVIN [Suspect]
     Dosage: 0.1%
     Route: 045

REACTIONS (5)
  - NASAL SEPTUM DEVIATION [None]
  - DRUG DEPENDENCE [None]
  - NASAL CONGESTION [None]
  - INCORRECT DRUG ADMINISTRATION DURATION [None]
  - OVERDOSE [None]
